FAERS Safety Report 8869699 (Version 2)
Quarter: 2012Q4

REPORT INFORMATION
  Report Type: 
  Country: US (occurrence: None)
  Receive Date: 20121031
  Receipt Date: 20121115
  Transmission Date: 20130627
  Serious: Yes (Hospitalization)
  Sender: FDA-Public Use
  Company Number: None

PATIENT
  Age: 53 Year
  Sex: Male
  Weight: 88.91 kg

DRUGS (3)
  1. METHYLPREDNISOLONE ACETATE [Suspect]
     Indication: SWELLING OF L KNEE
     Route: 014
     Dates: start: 20120823, end: 20120823
  2. METHYLPREDNISOLONE ACETATE [Suspect]
     Indication: ARTHRALGIA
     Route: 014
     Dates: start: 20120823, end: 20120823
  3. BETAMETHASONE [Suspect]

REACTIONS (4)
  - Staphylococcal infection [None]
  - Renal disorder [None]
  - Arthralgia [None]
  - Joint swelling [None]
